FAERS Safety Report 21226839 (Version 1)
Quarter: 2022Q3

REPORT INFORMATION
  Report Type: Spontaneous
  Country: CA (occurrence: CA)
  Receive Date: 20220818
  Receipt Date: 20220818
  Transmission Date: 20221027
  Serious: Yes (Other)
  Sender: FDA-Public Use
  Company Number: CA-TERSERA THERAPEUTICS LLC-2022TRS003377

PATIENT

DRUGS (2)
  1. ZOLADEX [Suspect]
     Active Substance: GOSERELIN ACETATE
     Indication: Prostate cancer
     Dosage: 10.8 MG, EVERY 12 WEEKS
     Route: 058
  2. ZOLADEX [Suspect]
     Active Substance: GOSERELIN ACETATE
     Indication: Prostate cancer
     Dosage: UNK
     Route: 065

REACTIONS (7)
  - Crying [Recovered/Resolved]
  - Asthenia [Recovered/Resolved]
  - Blood pressure increased [Recovered/Resolved]
  - Erectile dysfunction [Recovered/Resolved]
  - Gynaecomastia [Recovered/Resolved]
  - Hot flush [Recovered/Resolved]
  - Weight increased [Recovered/Resolved]
